FAERS Safety Report 4978546-7 (Version None)
Quarter: 2006Q1

REPORT INFORMATION
  Report Type: 
  Country: None (occurrence: None)
  Receive Date: 20060216
  Receipt Date: 20051114
  Transmission Date: 20060701
  Serious: No
  Sender: FDA-Public Use
  Company Number: TPA2005A01494

PATIENT

DRUGS (1)
  1. ROZEREM [Suspect]
     Route: 065

REACTIONS (1)
  - SLEEP DISORDER [None]
